FAERS Safety Report 5116864-2 (Version None)
Quarter: 2006Q3

REPORT INFORMATION
  Report Type: 
  Country: None (occurrence: None)
  Receive Date: 20060928
  Receipt Date: 20060808
  Transmission Date: 20061208
  Serious: No
  Sender: FDA-Public Use
  Company Number: 2006UW15862

PATIENT
  Age: 79 Year
  Sex: Female
  Weight: 53.2 kg

DRUGS (6)
  1. CRESTOR [Suspect]
     Route: 048
     Dates: start: 20040114, end: 20040201
  2. CRESTOR [Suspect]
     Dosage: TITRATED UP TO TWO 10 MG TABLETS ONCE DAILY
     Route: 048
     Dates: start: 20040213, end: 20040624
  3. HYDROCHLOROTHIAZDE TAB [Concomitant]
     Indication: OEDEMA
     Route: 048
  4. ACIPHEX [Concomitant]
     Indication: GASTROOESOPHAGEAL REFLUX DISEASE
     Route: 048
  5. ZYRTEC [Concomitant]
     Indication: MULTIPLE ALLERGIES
     Route: 048
  6. NORVASC [Concomitant]
     Indication: HYPERTENSION
     Route: 048

REACTIONS (6)
  - BLOOD CREATINE PHOSPHOKINASE INCREASED [None]
  - BLOOD TRIGLYCERIDES INCREASED [None]
  - BLOOD UREA INCREASED [None]
  - GAIT DISTURBANCE [None]
  - MYOGLOBIN BLOOD INCREASED [None]
  - PAIN IN EXTREMITY [None]
